FAERS Safety Report 18984264 (Version 1)
Quarter: 2021Q1

REPORT INFORMATION
  Report Type: Other
  Country: FR (occurrence: FR)
  Receive Date: 20210308
  Receipt Date: 20210308
  Transmission Date: 20210420
  Serious: Yes (Other)
  Sender: FDA-Public Use
  Company Number: FR-ROCHE-2777399

PATIENT

DRUGS (3)
  1. TOCILIZUMAB. [Suspect]
     Active Substance: TOCILIZUMAB
     Indication: GIANT CELL ARTERITIS
     Route: 065
  2. PREDNISONE. [Suspect]
     Active Substance: PREDNISONE
     Indication: GIANT CELL ARTERITIS
     Route: 065
  3. METHOTREXATE. [Suspect]
     Active Substance: METHOTREXATE
     Indication: GIANT CELL ARTERITIS
     Route: 065

REACTIONS (20)
  - Cataract [Unknown]
  - Aphthous ulcer [Unknown]
  - Mood altered [Unknown]
  - Headache [Unknown]
  - Diabetes mellitus [Unknown]
  - Transaminases increased [Unknown]
  - Treatment failure [Unknown]
  - Cardiovascular disorder [Unknown]
  - Gastrointestinal disorder [Unknown]
  - Osteoporotic fracture [Unknown]
  - Osteonecrosis [Unknown]
  - Thrombocytopenia [Unknown]
  - Hypertension [Unknown]
  - Infection [Unknown]
  - Neutropenia [Unknown]
  - Adrenocorticotropic hormone deficiency [Unknown]
  - Cutaneous vasculitis [Unknown]
  - Myopathy [Unknown]
  - Renal cell carcinoma [Unknown]
  - Central obesity [Unknown]
